FAERS Safety Report 11199094 (Version 1)
Quarter: 2015Q2

REPORT INFORMATION
  Report Type: Spontaneous
  Country: FR (occurrence: None)
  Receive Date: 20150616
  Receipt Date: 20150616
  Transmission Date: 20150821
  Serious: Yes (Hospitalization)
  Sender: FDA-Public Use
  Company Number: 2015FE01948

PATIENT
  Age: 74 Year
  Sex: Male

DRUGS (9)
  1. CANDESARTAN CILEXETIL. [Concomitant]
     Active Substance: CANDESARTAN CILEXETIL
  2. FLUVASTINE ACCORD (FLUVASTATIN SODIUM) [Concomitant]
  3. KARDEGIC [Concomitant]
     Active Substance: ASPIRIN LYSINE
  4. LOPERAMIDE [Concomitant]
     Active Substance: LOPERAMIDE
  5. DICLOFENAC [Concomitant]
     Active Substance: DICLOFENAC
  6. BILASTINE [Concomitant]
     Active Substance: BILASTINE
  7. FIRMAGON [Suspect]
     Active Substance: DEGARELIX ACETATE
     Indication: PROSTATE CANCER
     Route: 058
     Dates: start: 20140701, end: 20150404
  8. CELIPROLOL [Concomitant]
     Active Substance: CELIPROLOL
  9. ECONAZOLE [Concomitant]
     Active Substance: ECONAZOLE

REACTIONS (1)
  - Pemphigoid [None]

NARRATIVE: CASE EVENT DATE: 201410
